FAERS Safety Report 18476770 (Version 2)
Quarter: 2021Q1

REPORT INFORMATION
  Report Type: Spontaneous
  Country: TR (occurrence: TR)
  Receive Date: 20201107
  Receipt Date: 20210326
  Transmission Date: 20210419
  Serious: Yes (Hospitalization, Other)
  Sender: FDA-Public Use
  Company Number: TR-ACCORD-207642

PATIENT
  Age: 45 Year
  Sex: Male

DRUGS (2)
  1. PREDNISOLONE. [Suspect]
     Active Substance: PREDNISOLONE
     Indication: PEMPHIGUS
  2. METHOTREXATE. [Suspect]
     Active Substance: METHOTREXATE
     Indication: PEMPHIGUS

REACTIONS (8)
  - Hepatomegaly [Recovered/Resolved]
  - Pneumonia salmonella [Recovered/Resolved]
  - Bacterial colitis [Recovered/Resolved]
  - Bone infarction [Recovered/Resolved]
  - Septic pulmonary embolism [Recovered/Resolved]
  - Terminal ileitis [Recovered/Resolved]
  - Osteomyelitis salmonella [Recovered/Resolved]
  - Typhoid fever [Recovered/Resolved]
